FAERS Safety Report 15037132 (Version 1)
Quarter: 2018Q2

REPORT INFORMATION
  Report Type: Spontaneous
  Country: GB (occurrence: GB)
  Receive Date: 20180620
  Receipt Date: 20180620
  Transmission Date: 20180711
  Serious: Yes (Other)
  Sender: FDA-Public Use
  Company Number: GB-PFIZER INC-2018244429

PATIENT
  Age: 63 Year
  Sex: Female

DRUGS (8)
  1. AMLODIPINE BESILATE [Suspect]
     Active Substance: AMLODIPINE BESYLATE
     Indication: BLOOD PRESSURE ABNORMAL
     Dosage: 10 MG, 1X/DAY (QD)
     Route: 048
     Dates: end: 20180501
  2. METFORMIN HCL [Suspect]
     Active Substance: METFORMIN HYDROCHLORIDE
     Dosage: 500 MG, 2X/DAY (BID)
     Route: 048
     Dates: end: 20180501
  3. SERETIDE [Suspect]
     Active Substance: FLUTICASONE PROPIONATE\SALMETEROL XINAFOATE
     Dosage: UNK
     Dates: end: 20180501
  4. COCODAMOL [Suspect]
     Active Substance: ACETAMINOPHEN\CODEINE PHOSPHATE
     Indication: RHEUMATOID ARTHRITIS
  5. BUSCOPAN [Suspect]
     Active Substance: BUTYLSCOPOLAMINE BROMIDE
     Dosage: UNK, AS NEEDED AS NEEDED (10 MG, 1-2 DF, EVERY 6 HOURS, PRN)
     Route: 048
     Dates: end: 20180501
  6. VENTOLIN [Suspect]
     Active Substance: ALBUTEROL SULFATE
     Indication: ASTHMA
     Dosage: UNK
     Dates: end: 20180501
  7. GAVISCON /00237601/ [Suspect]
     Active Substance: ALUMINUM HYDROXIDE\MAGNESIUM CARBONATE
     Dosage: UNK, AS NEEDED
     Dates: end: 20180501
  8. COCODAMOL [Suspect]
     Active Substance: ACETAMINOPHEN\CODEINE PHOSPHATE
     Indication: SCIATICA
     Dosage: 2 DF, 4X/DAY (2 TABLETS, 4 TIMES DAILY)
     Route: 048
     Dates: end: 20180501

REACTIONS (22)
  - Headache [Recovering/Resolving]
  - Fatigue [Recovering/Resolving]
  - Drug hypersensitivity [Recovering/Resolving]
  - Hypertension [Recovering/Resolving]
  - Vision blurred [Recovering/Resolving]
  - Renal impairment [Recovering/Resolving]
  - Swelling face [Recovering/Resolving]
  - Liver function test abnormal [Recovering/Resolving]
  - Dyspnoea [Recovering/Resolving]
  - Blister [Recovering/Resolving]
  - Constipation [Recovering/Resolving]
  - Tremor [Recovering/Resolving]
  - Hallucination [Recovering/Resolving]
  - Back pain [Recovering/Resolving]
  - Pruritus [Recovering/Resolving]
  - Rash [Recovering/Resolving]
  - Dysarthria [Recovering/Resolving]
  - Swelling [Recovering/Resolving]
  - Condition aggravated [Recovering/Resolving]
  - Asthma [Recovering/Resolving]
  - Lip swelling [Recovering/Resolving]
  - Confusional state [Recovering/Resolving]
